FAERS Safety Report 6710268-4 (Version None)
Quarter: 2010Q2

REPORT INFORMATION
  Report Type: 
  Country: None (occurrence: None)
  Receive Date: 20100430
  Receipt Date: 20100416
  Transmission Date: 20101027
  Serious: Yes (Other)
  Sender: FDA-Public Use
  Company Number: 010582

PATIENT
  Age: 27 Year
  Sex: Female

DRUGS (3)
  1. VIMPAT [Suspect]
     Indication: PARTIAL SEIZURES
     Dosage: MAXIMUM  DOSE: 300 MG; INCREASE;  50 MG/WEEK
     Dates: start: 20090401, end: 20090819
  2. LEVETIRACETAM [Concomitant]
  3. ZONISAMIDE [Concomitant]

REACTIONS (2)
  - APATHY [None]
  - FATIGUE [None]
